FAERS Safety Report 21967682 (Version 1)
Quarter: 2023Q1

REPORT INFORMATION
  Report Type: Spontaneous
  Country: IE (occurrence: None)
  Receive Date: 20230208
  Receipt Date: 20230208
  Transmission Date: 20230417
  Serious: Yes (Other)
  Sender: FDA-Public Use
  Company Number: 2023A024671

PATIENT
  Age: 78 Year
  Sex: Female
  Weight: 75 kg

DRUGS (1)
  1. FASLODEX [Suspect]
     Active Substance: FULVESTRANT
     Dosage: DOSE AS USED 250 MG UNKNOWN
     Route: 030
     Dates: start: 20230118

REACTIONS (2)
  - Dysphagia [Recovered/Resolved]
  - Cough [Recovered/Resolved]

NARRATIVE: CASE EVENT DATE: 20230118
